FAERS Safety Report 21578739 (Version 1)
Quarter: 2022Q4

REPORT INFORMATION
  Report Type: Report from Study
  Country: IT (occurrence: IT)
  Receive Date: 20221110
  Receipt Date: 20221110
  Transmission Date: 20230112
  Serious: Yes (Other)
  Sender: FDA-Public Use
  Company Number: None

PATIENT
  Age: 77 Year
  Sex: Male

DRUGS (5)
  1. DOXAZOSIN [Suspect]
     Active Substance: DOXAZOSIN MESYLATE
     Indication: Hypertension
     Dosage: UNIT DOSE : 1 DOSAGE FORM ,  FREQUENCY TIME : 1 DAY, DURATION :501 DAYS
     Route: 065
     Dates: start: 20210101, end: 20220517
  2. NEBIVOLOL [Suspect]
     Active Substance: NEBIVOLOL
     Indication: Hypertension
     Dosage: UNIT DOSE : 1 DOSAGE FORM ,  FREQUENCY TIME : 1 DAY, DURATION : 136 DAYS
     Route: 065
     Dates: start: 20220101, end: 20220517
  3. BARNIDIPINE HYDROCHLORIDE [Suspect]
     Active Substance: BARNIDIPINE HYDROCHLORIDE
     Indication: Hypertension
     Dosage: UNIT DOSE : 1 DOSAGE FORM ,  FREQUENCY TIME : 1 DAY
     Route: 065
     Dates: start: 20210101, end: 20220517
  4. ASPIRIN [Concomitant]
     Active Substance: ASPIRIN
     Indication: Product used for unknown indication
     Dosage: UNIT DOSE :  100 MG, FREQUENCY TIME : 1 DAY
  5. FUROSEMIDE [Concomitant]
     Active Substance: FUROSEMIDE
     Indication: Hypertension
     Dosage: UNIT DOSE : 1 DOSAGE FORM, DURATION :501 DAYS
     Dates: start: 20210101, end: 20220517

REACTIONS (2)
  - Syncope [Recovered/Resolved]
  - Orthostatic hypotension [Unknown]

NARRATIVE: CASE EVENT DATE: 20220517
